FAERS Safety Report 5450251-2 (Version None)
Quarter: 2007Q3

REPORT INFORMATION
  Report Type: 
  Country: None (occurrence: None)
  Receive Date: 20070912
  Receipt Date: 20070905
  Transmission Date: 20080115
  Serious: Yes (Hospitalization, Other)
  Sender: FDA-Public Use
  Company Number: JP-PFIZER INC-2003020546

PATIENT
  Sex: Male

DRUGS (2)
  1. ATARAX [Suspect]
     Indication: ECZEMA
     Dosage: TEXT:UNKNOWN-FREQ:DAILY
     Route: 048
     Dates: start: 20021224, end: 20030101
  2. NERISONA [Concomitant]
     Route: 065

REACTIONS (1)
  - ACUTE GENERALISED EXANTHEMATOUS PUSTULOSIS [None]
